FAERS Safety Report 8920703 (Version 1)
Quarter: 2012Q4

REPORT INFORMATION
  Report Type: 
  Country: US (occurrence: US)
  Receive Date: 20121122
  Receipt Date: 20121122
  Transmission Date: 20130627
  Serious: Yes (Other)
  Sender: FDA-Public Use
  Company Number: CHPA2012US023682

PATIENT
  Sex: Female

DRUGS (5)
  1. HABITROL [Suspect]
     Indication: SMOKING CESSATION THERAPY
     Dosage: 21 mg, Unk
     Route: 062
     Dates: start: 201205, end: 201206
  2. HABITROL [Suspect]
     Dosage: 21 mg, Unk
     Dates: start: 20121110
  3. DRUG THERAPY NOS [Suspect]
     Indication: SCHIZOPHRENIA
     Dosage: UNK
     Dates: start: 2012
  4. ANTIDEPRESSANTS [Concomitant]
     Indication: DEPRESSION
  5. DRUG THERAPY NOS [Concomitant]

REACTIONS (4)
  - Ear infection [Recovered/Resolved]
  - Insomnia [Recovered/Resolved]
  - Abnormal dreams [Recovered/Resolved]
  - Diarrhoea [Recovered/Resolved]
